FAERS Safety Report 7712473-7 (Version None)
Quarter: 2011Q3

REPORT INFORMATION
  Report Type: 
  Country: None (occurrence: None)
  Receive Date: 20110826
  Receipt Date: 20110826
  Transmission Date: 20111222
  Serious: Yes (Hospitalization)
  Sender: FDA-Public Use
  Company Number: None

PATIENT
  Age: 39 Year
  Sex: Female
  Weight: 56 kg

DRUGS (8)
  1. BISACODYL [Concomitant]
     Route: 048
  2. FOLIC ACID [Concomitant]
     Route: 048
  3. AZATHIOPRINE [Suspect]
     Indication: CROHN'S DISEASE
     Dosage: 50 MG
     Route: 048
  4. POLYETHYLENE GYLCOL [Concomitant]
     Route: 048
  5. VITAMIN D [Concomitant]
     Route: 048
  6. FAMOTIDINE [Concomitant]
     Route: 048
  7. ASCORBIC ACID [Concomitant]
     Route: 048
  8. CALCIUM + VITAMIN D [Concomitant]
     Route: 048

REACTIONS (4)
  - PYREXIA [None]
  - CHILLS [None]
  - PANCREATITIS ACUTE [None]
  - MALAISE [None]
